FAERS Safety Report 6748220-5 (Version None)
Quarter: 2010Q2

REPORT INFORMATION
  Report Type: 
  Country: None (occurrence: None)
  Receive Date: 20100601
  Receipt Date: 20100517
  Transmission Date: 20101027
  Serious: Yes (Hospitalization)
  Sender: FDA-Public Use
  Company Number: US-ASTRAZENECA-2007UW12003

PATIENT
  Sex: Male

DRUGS (5)
  1. SEROQUEL [Suspect]
     Dosage: 200 MG IN MORNING, 100 MG IN EARLY AFTERNOON, 100 MG IN LATE AFTERNOON AND 200 MG AT BED TIME
     Route: 048
     Dates: start: 20020820
  2. LITHIUM [Concomitant]
  3. SYNTHROID [Concomitant]
  4. ATENOLOL [Concomitant]
  5. TOPAMAX [Concomitant]

REACTIONS (3)
  - DIABETES MELLITUS [None]
  - NEPHROGENIC DIABETES INSIPIDUS [None]
  - RENAL FAILURE [None]
